FAERS Safety Report 25356214 (Version 1)
Quarter: 2025Q2

REPORT INFORMATION
  Report Type: Report from Study
  Country: TH (occurrence: TH)
  Receive Date: 20250526
  Receipt Date: 20250526
  Transmission Date: 20250716
  Serious: Yes (Hospitalization)
  Sender: ALEXION PHARMACEUTICALS
  Company Number: TH-AstraZeneca-CH-00875553A

PATIENT
  Age: 63 Year

DRUGS (1)
  1. OLAPARIB [Suspect]
     Active Substance: OLAPARIB
     Indication: Malignant peritoneal neoplasm
     Dosage: 300 MILLIGRAM, BID

REACTIONS (10)
  - Pallor [Not Recovered/Not Resolved]
  - Eating disorder [Unknown]
  - Dizziness [Unknown]
  - Fatigue [Unknown]
  - Weight decreased [Unknown]
  - Impaired quality of life [Unknown]
  - Shock [Unknown]
  - Oxygen saturation decreased [Unknown]
  - Sepsis [Unknown]
  - Full blood count abnormal [Unknown]
